FAERS Safety Report 17442441 (Version 1)
Quarter: 2020Q1

REPORT INFORMATION
  Report Type: Report from Study
  Country: GB (occurrence: GB)
  Receive Date: 20200220
  Receipt Date: 20200220
  Transmission Date: 20200409
  Serious: Yes (Hospitalization, Other)
  Sender: FDA-Public Use
  Company Number: GB-JNJFOC-20191132185

PATIENT
  Age: 52 Year

DRUGS (1)
  1. STELARA [Suspect]
     Active Substance: USTEKINUMAB
     Indication: PSORIASIS
     Route: 058
     Dates: start: 20170524

REACTIONS (7)
  - Cardiac disorder [Unknown]
  - Off label use [Unknown]
  - Product use issue [Unknown]
  - Malaise [Unknown]
  - Sepsis [Unknown]
  - Psoriasis [Unknown]
  - Limb operation [Unknown]

NARRATIVE: CASE EVENT DATE: 20170524
